FAERS Safety Report 14306553 (Version 1)
Quarter: 2017Q4

REPORT INFORMATION
  Report Type: Report from Study
  Country: None (occurrence: US)
  Receive Date: 20171220
  Receipt Date: 20171220
  Transmission Date: 20180321
  Serious: Yes (Other)
  Sender: FDA-Public Use
  Company Number: US-ABBVIE-16K-163-1550362-00

PATIENT
  Age: 52 Year
  Sex: Female

DRUGS (1)
  1. HUMIRA [Suspect]
     Active Substance: ADALIMUMAB
     Indication: RHEUMATOID ARTHRITIS
     Route: 058
     Dates: start: 201508, end: 2015

REACTIONS (5)
  - Abdominal mass [Unknown]
  - Drug ineffective [Recovering/Resolving]
  - Nasopharyngitis [Recovered/Resolved]
  - Nasopharyngitis [Unknown]
  - Post procedural infection [Unknown]

NARRATIVE: CASE EVENT DATE: 201508
